FAERS Safety Report 4386128-3 (Version None)
Quarter: 2004Q2

REPORT INFORMATION
  Report Type: 
  Country: None (occurrence: None)
  Receive Date: 20040629
  Receipt Date: 20030929
  Transmission Date: 20050107
  Serious: Yes (Other)
  Sender: FDA-Public Use
  Company Number: US-MERCK-0310USA00108

PATIENT
  Age: 57 Year
  Sex: Female

DRUGS (3)
  1. FEPRAZONE [Concomitant]
     Indication: ARTHRITIS
     Route: 065
  2. INJECTABLE GOLD (UNSPECIFIED) [Concomitant]
     Route: 065
  3. VIOXX [Suspect]
     Indication: PAIN
     Route: 048
     Dates: start: 19990101, end: 20020101

REACTIONS (5)
  - ARTHRITIS [None]
  - CEREBROVASCULAR ACCIDENT [None]
  - DIZZINESS [None]
  - EMOTIONAL DISTRESS [None]
  - HEADACHE [None]
